FAERS Safety Report 6268167-0 (Version None)
Quarter: 2009Q3

REPORT INFORMATION
  Report Type: 
  Country: None (occurrence: None)
  Receive Date: 20090713
  Receipt Date: 20090713
  Transmission Date: 20100115
  Serious: No
  Sender: FDA-Public Use
  Company Number: None

PATIENT
  Sex: Female
  Weight: 88.905 kg

DRUGS (5)
  1. MORPHINE SULFATE [Suspect]
  2. TRAMADOL HCL [Suspect]
  3. FENTANYL [Suspect]
  4. LYRICA [Suspect]
  5. NEURONTIN [Suspect]

REACTIONS (2)
  - DRUG INEFFECTIVE [None]
  - NAUSEA [None]
